FAERS Safety Report 4545286-8 (Version None)
Quarter: 2004Q4

REPORT INFORMATION
  Report Type: 
  Country: None (occurrence: None)
  Receive Date: 20041222
  Receipt Date: 20040614
  Transmission Date: 20050328
  Serious: Yes (Hospitalization, Other)
  Sender: FDA-Public Use
  Company Number: USA040670023

PATIENT
  Age: 69 Year
  Sex: Male
  Weight: 121 kg

DRUGS (4)
  1. HUMALOG [Suspect]
     Dosage: 50 U/1 IN THE MORNING
     Dates: start: 19960101
  2. PLAVIX [Concomitant]
  3. ZOCOR [Concomitant]
  4. TOPROL-XL [Concomitant]

REACTIONS (2)
  - LOSS OF CONSCIOUSNESS [None]
  - MYOCARDIAL INFARCTION [None]
